FAERS Safety Report 10690119 (Version 1)
Quarter: 2015Q1

REPORT INFORMATION
  Report Type: Spontaneous
  Country: US (occurrence: None)
  Receive Date: 20150102
  Receipt Date: 20150102
  Transmission Date: 20150720
  Serious: Yes (Other)
  Sender: FDA-Public Use
  Company Number: None

PATIENT
  Age: 45 Year
  Sex: Male
  Weight: 88.45 kg

DRUGS (1)
  1. LAMISIL [Suspect]
     Active Substance: TERBINAFINE HYDROCHLORIDE

REACTIONS (8)
  - Discomfort [None]
  - Skin irritation [None]
  - Skin injury [None]
  - Insomnia [None]
  - Scratch [None]
  - Headache [None]
  - Drug hypersensitivity [None]
  - Dysgeusia [None]

NARRATIVE: CASE EVENT DATE: 20141230
